FAERS Safety Report 20966657 (Version 1)
Quarter: 2022Q2

REPORT INFORMATION
  Report Type: Spontaneous
  Country: US (occurrence: None)
  Receive Date: 20220615
  Receipt Date: 20220615
  Transmission Date: 20220721
  Serious: Yes (unspecified)
  Sender: FDA-Public Use
  Company Number: None

PATIENT
  Age: 18 Year
  Sex: Female
  Weight: 99.9 kg

DRUGS (7)
  1. NEXPLANON [Suspect]
     Active Substance: ETONOGESTREL
     Indication: Polycystic ovaries
     Dosage: OTHER QUANTITY : 1 IMPLANT;?OTHER FREQUENCY : 3 YEAR IMPLANT;?
     Route: 058
     Dates: end: 20220615
  2. METFORMIN [Concomitant]
     Active Substance: METFORMIN HYDROCHLORIDE
  3. PROPRANOLOL [Concomitant]
  4. DULOXETINE [Concomitant]
     Active Substance: DULOXETINE
  5. LAMOTRIGINE [Concomitant]
     Active Substance: LAMOTRIGINE
  6. L-METHYFOLATE [Concomitant]
  7. VITAMIN D NOS [Concomitant]
     Active Substance: VITAMIN D NOS

REACTIONS (2)
  - Postoperative wound infection [None]
  - Complication of device removal [None]

NARRATIVE: CASE EVENT DATE: 20220608
